FAERS Safety Report 5631218-8 (Version None)
Quarter: 2008Q1

REPORT INFORMATION
  Report Type: 
  Country: None (occurrence: None)
  Receive Date: 20080219
  Receipt Date: 20080207
  Transmission Date: 20080703
  Serious: Yes (Other)
  Sender: FDA-Public Use
  Company Number: US-PFIZER INC-2008013762

PATIENT
  Sex: Female

DRUGS (2)
  1. CHANTIX [Suspect]
  2. EFFEXOR [Suspect]

REACTIONS (5)
  - BIPOLAR DISORDER [None]
  - DRUG INEFFECTIVE [None]
  - FEELING ABNORMAL [None]
  - NAUSEA [None]
  - NIGHTMARE [None]
